FAERS Safety Report 10084953 (Version 3)
Quarter: 2015Q1

REPORT INFORMATION
  Report Type: Spontaneous
  Country: US (occurrence: US)
  Receive Date: 20140417
  Receipt Date: 20150209
  Transmission Date: 20150720
  Serious: Yes (Hospitalization, Other)
  Sender: FDA-Public Use
  Company Number: US-BAYER-2014-057313

PATIENT
  Age: 23 Year
  Sex: Female
  Weight: 95.24 kg

DRUGS (4)
  1. ZOMIG [Concomitant]
     Active Substance: ZOLMITRIPTAN
     Dosage: UNK
     Dates: start: 20060505
  2. YASMIN [Suspect]
     Active Substance: DROSPIRENONE\ETHINYL ESTRADIOL
  3. DARVOCET [Concomitant]
     Active Substance: ACETAMINOPHEN\PROPOXYPHENE HYDROCHLORIDE
  4. YAZ [Suspect]
     Active Substance: DROSPIRENONE\ETHINYL ESTRADIOL
     Dosage: UNK
     Dates: start: 2004, end: 2005

REACTIONS (6)
  - Pulmonary embolism [None]
  - Thrombosis [None]
  - Pain [None]
  - Deep vein thrombosis [None]
  - Cerebrovascular accident [None]
  - Injury [None]

NARRATIVE: CASE EVENT DATE: 20060505
